FAERS Safety Report 5201111-3 (Version None)
Quarter: 2007Q1

REPORT INFORMATION
  Report Type: 
  Country: None (occurrence: None)
  Receive Date: 20070103
  Receipt Date: 20061218
  Transmission Date: 20070707
  Serious: Yes (Life-Threatening, Hospitalization)
  Sender: FDA-Public Use
  Company Number: DSA_29167_2006

PATIENT
  Age: 39 Year
  Sex: Female

DRUGS (1)
  1. TAVOR /00273201/ [Suspect]
     Dosage: 20 MG ONCE PO
     Route: 048
     Dates: start: 20061218, end: 20061218

REACTIONS (4)
  - INTENTIONAL OVERDOSE [None]
  - SOMNOLENCE [None]
  - SUICIDE ATTEMPT [None]
  - VOMITING [None]
